FAERS Safety Report 15342270 (Version 1)
Quarter: 2018Q3

REPORT INFORMATION
  Report Type: Report from Study
  Country: NL (occurrence: NL)
  Receive Date: 20180902
  Receipt Date: 20180902
  Transmission Date: 20181010
  Serious: Yes (Death)
  Sender: FDA-Public Use
  Company Number: PHHY2018NL083176

PATIENT
  Age: 75 Year
  Sex: Male

DRUGS (1)
  1. ZOMETA [Suspect]
     Active Substance: ZOLEDRONIC ACID
     Indication: PRODUCT USED FOR UNKNOWN INDICATION
     Dosage: 4 MG/100ML (ONCE PER 12 WEEKS)
     Route: 042

REACTIONS (2)
  - Inappropriate schedule of drug administration [Unknown]
  - Terminal state [Fatal]

NARRATIVE: CASE EVENT DATE: 20180821
